FAERS Safety Report 8387845-0 (Version None)
Quarter: 2012Q2

REPORT INFORMATION
  Report Type: 
  Country: None (occurrence: None)
  Receive Date: 20120525
  Receipt Date: 20120327
  Transmission Date: 20120825
  Serious: No
  Sender: FDA-Public Use
  Company Number: US-BRISTOL-MYERS SQUIBB COMPANY-16423014

PATIENT
  Age: 50 Year
  Sex: Male
  Weight: 129 kg

DRUGS (3)
  1. INDERAL LA [Concomitant]
  2. PROZAC [Concomitant]
     Indication: ANXIETY
  3. KOMBIGLYZE XR [Suspect]
     Indication: TYPE 2 DIABETES MELLITUS

REACTIONS (2)
  - BLOOD GLUCOSE FLUCTUATION [None]
  - MEDICATION RESIDUE [None]
